FAERS Safety Report 21687253 (Version 2)
Quarter: 2022Q4

REPORT INFORMATION
  Report Type: Spontaneous
  Country: CO (occurrence: CO)
  Receive Date: 20221206
  Receipt Date: 20221209
  Transmission Date: 20230113
  Serious: Yes (Death, Hospitalization)
  Sender: FDA-Public Use
  Company Number: CO-RECORDATI RARE DISEASE INC.-2022005816

PATIENT
  Age: 39 Year
  Sex: Female
  Weight: 98 kg

DRUGS (2)
  1. PANHEMATIN [Suspect]
     Active Substance: HEMIN
     Indication: Porphyria acute
     Dosage: UNK
     Route: 042
     Dates: start: 20220719, end: 20220725
  2. DEXTROSE [Concomitant]
     Active Substance: DEXTROSE
     Indication: Porphyria acute
     Dosage: UNK
     Route: 065

REACTIONS (1)
  - Porphyria acute [Fatal]

NARRATIVE: CASE EVENT DATE: 20221012
